FAERS Safety Report 5213947-3 (Version None)
Quarter: 2007Q1

REPORT INFORMATION
  Report Type: 
  Country: None (occurrence: None)
  Receive Date: 20070112
  Receipt Date: 20070103
  Transmission Date: 20070707
  Serious: Yes (Hospitalization)
  Sender: FDA-Public Use
  Company Number: GXKR2007GB00481

PATIENT
  Age: 76 Year
  Sex: Female

DRUGS (6)
  1. MIRTAZAPINE [Suspect]
     Indication: DEPRESSION
     Dosage: 7.5 MG, ORAL
     Route: 048
     Dates: start: 20060915, end: 20061023
  2. ASPIRIN [Concomitant]
  3. GLICLAZIDE (GLICLAZIDE) [Concomitant]
  4. RAMIPRIL [Concomitant]
  5. SIMVASTATIN [Concomitant]
  6. FORTISIP ( CARBOHYDRATES NOS; FATS NOS, MINERALS NOS, PROTEIN, VITAMIN [Concomitant]

REACTIONS (2)
  - JAUNDICE [None]
  - LIVER FUNCTION TEST ABNORMAL [None]
